FAERS Safety Report 6098749-0 (Version None)
Quarter: 2009Q1

REPORT INFORMATION
  Report Type: 
  Country: None (occurrence: None)
  Receive Date: 20090302
  Receipt Date: 20090218
  Transmission Date: 20090719
  Serious: Yes (Death, Hospitalization, Other)
  Sender: FDA-Public Use
  Company Number: US-PFIZER INC-2009172766

PATIENT
  Sex: Male

DRUGS (1)
  1. LYRICA [Suspect]
     Indication: NEUROPATHY PERIPHERAL

REACTIONS (5)
  - ASTHMA [None]
  - CONVULSION [None]
  - DEAFNESS UNILATERAL [None]
  - MYOCARDIAL INFARCTION [None]
  - RESPIRATORY ARREST [None]
